FAERS Safety Report 7988203-0 (Version None)
Quarter: 2011Q4

REPORT INFORMATION
  Report Type: 
  Country: None (occurrence: None)
  Receive Date: 20111216
  Receipt Date: 20101220
  Transmission Date: 20120403
  Serious: No
  Sender: FDA-Public Use
  Company Number: US-BRISTOL-MYERS SQUIBB COMPANY-15451552

PATIENT
  Age: 54 Year
  Sex: Female

DRUGS (4)
  1. ABILIFY [Suspect]
     Indication: DYSTHYMIC DISORDER
     Dosage: DOSE INCREASED TO 10 MG,AND TAPERED OFF ABILIFY IN JUL10
     Dates: start: 20100201, end: 20100701
  2. PROZAC [Concomitant]
  3. ABILIFY [Suspect]
     Indication: MAJOR DEPRESSION
     Dosage: DOSE INCREASED TO 10 MG,AND TAPERED OFF ABILIFY IN JUL10
     Dates: start: 20100201, end: 20100701
  4. ABILIFY [Suspect]
     Indication: AUTISM SPECTRUM DISORDER
     Dosage: DOSE INCREASED TO 10 MG,AND TAPERED OFF ABILIFY IN JUL10
     Dates: start: 20100201, end: 20100701

REACTIONS (1)
  - TARDIVE DYSKINESIA [None]
